FAERS Safety Report 21820924 (Version 1)
Quarter: 2023Q1

REPORT INFORMATION
  Report Type: Spontaneous
  Country: US (occurrence: US)
  Receive Date: 20230105
  Receipt Date: 20230105
  Transmission Date: 20230418
  Serious: No
  Sender: FDA-Public Use
  Company Number: US-TEVA-2022-US-2841148

PATIENT
  Age: 16 Year
  Sex: Female
  Weight: 43.09 kg

DRUGS (2)
  1. ISOTRETINOIN [Suspect]
     Active Substance: ISOTRETINOIN
     Indication: Acne
     Dosage: 2 DOSAGE FORMS DAILY; 2 TABLETS DAILY
     Route: 065
     Dates: start: 202208
  2. Flinstone multi-vitamin [Concomitant]
     Indication: Product used for unknown indication
     Dosage: DAILY
     Route: 065

REACTIONS (1)
  - Abdominal pain upper [Not Recovered/Not Resolved]

NARRATIVE: CASE EVENT DATE: 20221222
